FAERS Safety Report 16497830 (Version 3)
Quarter: 2019Q3

REPORT INFORMATION
  Report Type: Spontaneous
  Country: AR (occurrence: AR)
  Receive Date: 20190628
  Receipt Date: 20190812
  Transmission Date: 20191004
  Serious: Yes (Hospitalization)
  Sender: FDA-Public Use
  Company Number: AR-GLAXOSMITHKLINE-AR2019GSK094281

PATIENT
  Sex: Female

DRUGS (1)
  1. NUCALA [Suspect]
     Active Substance: MEPOLIZUMAB
     Indication: ASTHMA
     Dosage: UNK

REACTIONS (8)
  - Sputum retention [Unknown]
  - Muscle spasms [Unknown]
  - Malaise [Unknown]
  - Choking sensation [Unknown]
  - Fatigue [Unknown]
  - Dyspnoea [Unknown]
  - Product use issue [Unknown]
  - Nasopharyngitis [Unknown]
